FAERS Safety Report 4917685-3 (Version None)
Quarter: 2006Q1

REPORT INFORMATION
  Report Type: 
  Country: None (occurrence: None)
  Receive Date: 20060221
  Receipt Date: 20060209
  Transmission Date: 20060701
  Serious: Yes (Hospitalization)
  Sender: FDA-Public Use
  Company Number: BE-ROCHE-435876

PATIENT
  Age: 44 Year
  Sex: Female
  Weight: 55 kg

DRUGS (3)
  1. FUZEON [Suspect]
     Route: 058
     Dates: end: 20050301
  2. TENOFOVIR [Concomitant]
  3. EFAVIRENZ [Concomitant]

REACTIONS (1)
  - PYELONEPHRITIS [None]
